FAERS Safety Report 20408336 (Version 4)
Quarter: 2023Q1

REPORT INFORMATION
  Report Type: Spontaneous
  Country: CN (occurrence: None)
  Receive Date: 20220201
  Receipt Date: 20230330
  Transmission Date: 20230418
  Serious: Yes (Other)
  Sender: FDA-Public Use
  Company Number: CN-ROCHE-3009257

PATIENT
  Age: 11 Month
  Sex: Male
  Weight: 11.5 kg

DRUGS (13)
  1. HEMLIBRA [Suspect]
     Active Substance: EMICIZUMAB-KXWH
     Indication: Factor VIII deficiency
     Dosage: LOADING DOSE: 3 MG/KG, ONCE EVERY 10 DAYS 4 TIMES; MAINTENANCE DOSE: 1.5 MG/KG,?ONCE EVERY 2 WEEKS
     Route: 065
     Dates: start: 202004
  2. HEMLIBRA [Suspect]
     Active Substance: EMICIZUMAB-KXWH
     Dosage: LOADING DOSE: 3 MG/KG, ONCE PER WEEK FOR 4 WEEKS; MAINTENANCE DOSE: 2-3 MG/KG, ONCE PER 10 DAYS.
     Route: 065
     Dates: start: 2020
  3. HEMLIBRA [Suspect]
     Active Substance: EMICIZUMAB-KXWH
     Dosage: EMICIZUMAB COMBINED WITH ITI
     Route: 065
     Dates: start: 2021
  4. HEMLIBRA [Suspect]
     Active Substance: EMICIZUMAB-KXWH
     Dosage: EMICIZUMAB COMBINED WITH ITI
     Route: 065
     Dates: start: 202202
  5. AGKISTRODON VIPER HEMAGGLUTINASE [Concomitant]
     Indication: Factor VIII deficiency
  6. AMINOCAPROIC ACID [Concomitant]
     Active Substance: AMINOCAPROIC ACID
     Indication: Factor VIII deficiency
  7. CARBAZOCHROME SODIUM SULFONATE [Concomitant]
     Active Substance: CARBAZOCHROME SODIUM SULFONATE
     Indication: Factor VIII deficiency
  8. COAGULATION FACTOR VIIA RECOMBINANT HUMAN-JNCW [Concomitant]
     Active Substance: COAGULATION FACTOR VIIA RECOMBINANT HUMAN-JNCW
     Indication: Factor VIII deficiency
  9. PROTHROMBIN COMPLEX CONCENTRATE NOS [Concomitant]
     Active Substance: COAGULATION FACTOR IX HUMAN\COAGULATION FACTOR VII HUMAN\COAGULATION FACTOR X HUMAN\PROTHROMBIN
     Indication: Factor VIII deficiency
  10. HUMAN IMMUNOGLOBULIN G [Concomitant]
     Active Substance: HUMAN IMMUNOGLOBULIN G
     Indication: Factor VIII deficiency
     Route: 041
  11. METHYLPREDNISOLONE SODIUM SUCCINATE [Concomitant]
     Active Substance: METHYLPREDNISOLONE SODIUM SUCCINATE
  12. MANNITOL [Concomitant]
     Active Substance: MANNITOL
  13. VITAMIN K [Concomitant]
     Active Substance: PHYTONADIONE

REACTIONS (2)
  - Haemarthrosis [Recovering/Resolving]
  - Tongue haemorrhage [Recovered/Resolved]

NARRATIVE: CASE EVENT DATE: 20210301
